FAERS Safety Report 25127440 (Version 3)
Quarter: 2025Q2

REPORT INFORMATION
  Report Type: Spontaneous
  Country: US (occurrence: US)
  Receive Date: 20250327
  Receipt Date: 20250515
  Transmission Date: 20250716
  Serious: No
  Sender: JOHNSON AND JOHNSON
  Company Number: US-JNJFOC-20250350197

PATIENT
  Age: 85 Year
  Sex: Male

DRUGS (5)
  1. ERLEADA [Suspect]
     Active Substance: APALUTAMIDE
     Indication: Hormone-dependent prostate cancer
     Route: 048
     Dates: start: 20240609
  2. PREDNISONE [Concomitant]
     Active Substance: PREDNISONE
     Indication: Hypersensitivity
  3. Triancinolone Acetonide [Concomitant]
     Indication: Dermatitis allergic
  4. XGEVA [Concomitant]
     Active Substance: DENOSUMAB
     Indication: Bone giant cell tumour
  5. LUPRON [Concomitant]
     Active Substance: LEUPROLIDE ACETATE
     Indication: Prostate cancer

REACTIONS (1)
  - Rash [Recovered/Resolved]

NARRATIVE: CASE EVENT DATE: 20250227
